FAERS Safety Report 25575629 (Version 1)
Quarter: 2025Q3

REPORT INFORMATION
  Report Type: Other
  Country: US (occurrence: US)
  Receive Date: 20250718
  Receipt Date: 20250718
  Transmission Date: 20251020
  Serious: Yes (Other)
  Sender: ANI
  Company Number: US-ANIPHARMA-023594

PATIENT
  Age: 41 Year
  Sex: Female

DRUGS (2)
  1. IBUPROFEN [Suspect]
     Active Substance: IBUPROFEN
     Indication: Analgesic intervention supportive therapy
  2. ASPIRIN [Concomitant]
     Active Substance: ASPIRIN
     Indication: Analgesic intervention supportive therapy

REACTIONS (3)
  - Angioedema [Unknown]
  - Hypersensitivity [Unknown]
  - Drug intolerance [Unknown]
